FAERS Safety Report 13053888 (Version 7)
Quarter: 2017Q3

REPORT INFORMATION
  Report Type: Spontaneous
  Country: US (occurrence: US)
  Receive Date: 20161222
  Receipt Date: 20170721
  Transmission Date: 20171127
  Serious: Yes (Hospitalization, Other)
  Sender: FDA-Public Use
  Company Number: PHEH2016US033459

PATIENT
  Age: 29 Year
  Sex: Female
  Weight: 56.24 kg

DRUGS (3)
  1. ZOFRAN [Suspect]
     Active Substance: ONDANSETRON HYDROCHLORIDE
     Indication: VOMITING IN PREGNANCY
     Dosage: 4 TO 8 MG, UNK
     Route: 042
     Dates: start: 19990110, end: 19990115
  2. ZOFRAN [Suspect]
     Active Substance: ONDANSETRON HYDROCHLORIDE
     Dosage: 4 MG
     Route: 042
     Dates: start: 19990613, end: 19990613
  3. ZOFRAN [Suspect]
     Active Substance: ONDANSETRON HYDROCHLORIDE
     Indication: VOMITING IN PREGNANCY
     Dosage: 4 MG, Q8H
     Route: 048
     Dates: start: 19990116

REACTIONS (15)
  - Arrhythmia [Unknown]
  - Anxiety [Unknown]
  - Road traffic accident [Unknown]
  - Dehydration [Unknown]
  - Atrioventricular block second degree [Unknown]
  - Emotional distress [Unknown]
  - Diarrhoea [Unknown]
  - Injury [Unknown]
  - Decreased appetite [Unknown]
  - Maternal exposure during pregnancy [Unknown]
  - Abdominal pain [Unknown]
  - Atrioventricular block first degree [Unknown]
  - Product use in unapproved indication [Unknown]
  - Premature labour [Unknown]
  - Gastroenteritis [Unknown]

NARRATIVE: CASE EVENT DATE: 19990420
